FAERS Safety Report 6060942-0 (Version None)
Quarter: 2009Q1

REPORT INFORMATION
  Report Type: 
  Country: None (occurrence: None)
  Receive Date: 20090130
  Receipt Date: 20090130
  Transmission Date: 20090719
  Serious: Yes (Hospitalization)
  Sender: FDA-Public Use
  Company Number: None

PATIENT
  Age: 59 Year
  Sex: Male

DRUGS (1)
  1. ALLOPURINOL [Suspect]
     Dosage: 1 TAB EVERY DAY PO
     Route: 048
     Dates: start: 20081126, end: 20090105

REACTIONS (3)
  - DRUG ERUPTION [None]
  - RENAL FAILURE ACUTE [None]
  - SKIN EXFOLIATION [None]
